FAERS Safety Report 23524288 (Version 1)
Quarter: 2024Q1

REPORT INFORMATION
  Report Type: 
  Country: None (occurrence: None)
  Receive Date: 20240214
  Receipt Date: 20240214
  Transmission Date: 20240409
  Serious: No
  Sender: FDA-Public Use
  Company Number: None

PATIENT
  Weight: 72 kg

DRUGS (9)
  1. CELLCEPT [Suspect]
     Active Substance: MYCOPHENOLATE MOFETIL
     Dates: start: 201707
  2. CERTICAN [Suspect]
     Active Substance: EVEROLIMUS
     Dates: start: 202310, end: 20231230
  3. CHOLECALCIFEROL [Concomitant]
     Active Substance: CHOLECALCIFEROL
  4. KARDEGIC [Concomitant]
     Active Substance: ASPIRIN DL-LYSINE
  5. FLECAINIDE [Concomitant]
     Active Substance: FLECAINIDE
  6. PRAZOSIN [Concomitant]
     Active Substance: PRAZOSIN
  7. ENALAPRIL [Concomitant]
     Active Substance: ENALAPRIL
  8. PRAVASTATIN SODIUM [Concomitant]
     Active Substance: PRAVASTATIN SODIUM
     Dates: end: 20231216
  9. ALLOPURINOL [Concomitant]
     Active Substance: ALLOPURINOL

REACTIONS (2)
  - Drug interaction [None]
  - Pneumocystis jirovecii pneumonia [None]

NARRATIVE: CASE EVENT DATE: 20231001
